FAERS Safety Report 9326283 (Version 1)
Quarter: 2013Q2

REPORT INFORMATION
  Report Type: Report from Study
  Country: MX (occurrence: MX)
  Receive Date: 20130604
  Receipt Date: 20130604
  Transmission Date: 20140414
  Serious: Yes (Other)
  Sender: FDA-Public Use
  Company Number: PHHY2013MX056410

PATIENT
  Sex: Female

DRUGS (3)
  1. CO-DIOVAN [Suspect]
     Indication: HYPERTENSION
     Dosage: UNK UKN, UNK
  2. LIPITOR [Concomitant]
     Dosage: 0.5 UKN, UNK
  3. CORDARONE [Concomitant]
     Dosage: UNK UKN, UNK
     Dates: start: 2011

REACTIONS (1)
  - Nephrolithiasis [Not Recovered/Not Resolved]
